FAERS Safety Report 19286496 (Version 4)
Quarter: 2021Q2

REPORT INFORMATION
  Report Type: Spontaneous
  Country: US (occurrence: US)
  Receive Date: 20210521
  Receipt Date: 20210625
  Transmission Date: 20210717
  Serious: Yes (Hospitalization, Other)
  Sender: FDA-Public Use
  Company Number: US-009507513-2105USA003696

PATIENT
  Age: 73 Year
  Sex: Female

DRUGS (2)
  1. KEYTRUDA [Suspect]
     Active Substance: PEMBROLIZUMAB
     Indication: OVARIAN EPITHELIAL CANCER RECURRENT
     Dosage: 200 MILLIGRAM, Q3W
     Route: 042
     Dates: start: 20210412, end: 202105
  2. GEMZAR [Suspect]
     Active Substance: GEMCITABINE HYDROCHLORIDE
     Indication: OVARIAN EPITHELIAL CANCER RECURRENT
     Dosage: UNK
     Route: 042
     Dates: start: 20210412

REACTIONS (9)
  - Malignant neoplasm progression [Unknown]
  - Orthostatic hypertension [Recovering/Resolving]
  - Transaminases increased [Recovered/Resolved]
  - Product use in unapproved indication [Unknown]
  - Stomatitis [Recovered/Resolved]
  - Headache [Recovering/Resolving]
  - Asthenia [Recovering/Resolving]
  - Immune-mediated lung disease [Recovered/Resolved]
  - Cognitive disorder [Recovering/Resolving]

NARRATIVE: CASE EVENT DATE: 2021
